FAERS Safety Report 8145902-8 (Version None)
Quarter: 2012Q1

REPORT INFORMATION
  Report Type: 
  Country: None (occurrence: None)
  Receive Date: 20120217
  Receipt Date: 20110627
  Transmission Date: 20120608
  Serious: No
  Sender: FDA-Public Use
  Company Number: US-ABBOTT-11P-163-0834573-00

PATIENT
  Sex: Female
  Weight: 66.738 kg

DRUGS (3)
  1. SIMCOR [Suspect]
     Indication: BLOOD CHOLESTEROL INCREASED
     Dosage: 500/20MG AT BEDTIME
     Route: 048
  2. SIMCOR [Suspect]
     Indication: BLOOD TRIGLYCERIDES INCREASED
     Dosage: 500/20MG AT BEDTIME
     Route: 048
  3. ASPIRIN [Concomitant]
     Indication: PRODUCT USED FOR UNKNOWN INDICATION
     Dosage: 1/2 AN HOUR PRIOR TO TAKING SIMCOR
     Route: 048

REACTIONS (7)
  - FLUSHING [None]
  - FEELING HOT [None]
  - PRURITUS [None]
  - SWELLING FACE [None]
  - SKIN BURNING SENSATION [None]
  - GASTRIC PH DECREASED [None]
  - PHARYNGEAL OEDEMA [None]
